FAERS Safety Report 21108672 (Version 4)
Quarter: 2022Q4

REPORT INFORMATION
  Report Type: Report from Study
  Country: BR (occurrence: BR)
  Receive Date: 20220721
  Receipt Date: 20221223
  Transmission Date: 20230113
  Serious: Yes (Other)
  Sender: FDA-Public Use
  Company Number: BR-JNJFOC-20220737760

PATIENT
  Age: 3 Decade
  Sex: Male
  Weight: 85 kg

DRUGS (3)
  1. INFLIXIMAB [Suspect]
     Active Substance: INFLIXIMAB
     Indication: Crohn^s disease
     Route: 041
     Dates: start: 20210812, end: 20220505
  2. INFLIXIMAB [Suspect]
     Active Substance: INFLIXIMAB
     Route: 041
  3. AZATHIOPRINE [Concomitant]
     Active Substance: AZATHIOPRINE

REACTIONS (6)
  - Hepatic infection [Not Recovered/Not Resolved]
  - Bone tuberculosis [Not Recovered/Not Resolved]
  - Pain in extremity [Not Recovered/Not Resolved]
  - Back pain [Not Recovered/Not Resolved]
  - Paraesthesia [Not Recovered/Not Resolved]
  - Off label use [Unknown]
